FAERS Safety Report 20165792 (Version 2)
Quarter: 2024Q2

REPORT INFORMATION
  Report Type: Spontaneous
  Country: FR (occurrence: FR)
  Receive Date: 20211209
  Receipt Date: 20240409
  Transmission Date: 20240716
  Serious: Yes (Hospitalization)
  Sender: FDA-Public Use
  Company Number: FR-Ultragenyx Pharmaceutical Inc.-FR-UGNX-21-00451

PATIENT
  Sex: Female

DRUGS (1)
  1. DOJOLVI [Suspect]
     Active Substance: TRIHEPTANOIN
     Indication: Long-chain acyl-coenzyme A dehydrogenase deficiency
     Dosage: UNK

REACTIONS (3)
  - Gastroenteritis viral [Unknown]
  - Gastrointestinal disorder [Unknown]
  - Condition aggravated [Unknown]
